FAERS Safety Report 4675215-8 (Version None)
Quarter: 2005Q2

REPORT INFORMATION
  Report Type: 
  Country: None (occurrence: None)
  Receive Date: 20050526
  Receipt Date: 20050518
  Transmission Date: 20051028
  Serious: No
  Sender: FDA-Public Use
  Company Number: J081-002-001954

PATIENT
  Age: 72 Year
  Sex: Female

DRUGS (4)
  1. ARICEPT [Suspect]
     Indication: DEMENTIA ALZHEIMER'S TYPE
     Dosage: SEE IMAGE
     Route: 048
     Dates: start: 20041229, end: 20050104
  2. ARICEPT [Suspect]
     Indication: DEMENTIA ALZHEIMER'S TYPE
     Dosage: SEE IMAGE
     Route: 048
     Dates: start: 20050105, end: 20050403
  3. ZOLPIDEM TARTRATE [Suspect]
     Dosage: 10 MG, 1 IN 1 D, ORAL
     Route: 048
     Dates: start: 20050209
  4. ASPIRIN [Concomitant]

REACTIONS (6)
  - CHEST DISCOMFORT [None]
  - DRUG INTERACTION [None]
  - INSOMNIA [None]
  - MUSCLE SPASMS [None]
  - NOCTURNAL DYSPNOEA [None]
  - OEDEMA PERIPHERAL [None]
